FAERS Safety Report 21585449 (Version 2)
Quarter: 2022Q4

REPORT INFORMATION
  Report Type: Report from Study
  Country: US (occurrence: US)
  Receive Date: 20221111
  Receipt Date: 20221219
  Transmission Date: 20230112
  Serious: Yes (Death, Hospitalization)
  Sender: FDA-Public Use
  Company Number: US-002147023-NVSC2022US255093

PATIENT
  Sex: Male

DRUGS (1)
  1. ENTRESTO [Suspect]
     Active Substance: SACUBITRIL\VALSARTAN
     Indication: Chronic left ventricular failure
     Dosage: UNK, 24/26 MG, QD
     Route: 048
     Dates: start: 20201222, end: 202210

REACTIONS (7)
  - Endocarditis bacterial [Fatal]
  - Endocarditis [Unknown]
  - Vomiting [Unknown]
  - Chronic kidney disease [Unknown]
  - Staphylococcal bacteraemia [Unknown]
  - Vascular device infection [Unknown]
  - Nausea [Unknown]
